FAERS Safety Report 8178944 (Version 3)
Quarter: 2012Q4

REPORT INFORMATION
  Report Type: Spontaneous
  Country: US (occurrence: None)
  Receive Date: 20111003
  Receipt Date: 20120928
  Transmission Date: 20130627
  Serious: Yes (Hospitalization, Other)
  Sender: FDA-Public Use
  Company Number: CIP11001752

PATIENT
  Age: 68 Year
  Sex: Female

DRUGS (64)
  1. ACTONEL [Suspect]
     Route: 048
     Dates: start: 20040525, end: 201106
  2. ACTONEL [Suspect]
     Dosage: 5 MG, ORAL
     Route: 048
     Dates: start: 20001128, end: 200405
  3. CEPHALEXIN [Concomitant]
  4. HYDROCODONE W/APAP (HYDROCODONE, PARACETAMOL) [Concomitant]
  5. PANTOPRAZOLE [Concomitant]
  6. ATENOLOL [Concomitant]
  7. CARISOPRODOL [Concomitant]
  8. NAPROXEN [Concomitant]
  9. AMOXICILLIN [Concomitant]
  10. CLOBETASOL (CLOBETASOL) [Concomitant]
  11. PROAIR HFA (SALBUTAMOL SULFATE) [Concomitant]
  12. AZITHROMYCIN [Concomitant]
  13. ADVAIR HFA [Concomitant]
  14. VENTOLIN HFA (SALBUTAMOL SULFATE) [Concomitant]
  15. FLUCONAZOLE [Concomitant]
  16. VOLTAREN [Concomitant]
  17. POTASSIUM CHLORIDE [Concomitant]
  18. FUROSEMIDE [Concomitant]
  19. CHERATUSSIN AC (CODEINE, GUAIFENESIN) [Concomitant]
  20. TERBINAFINE HYDROCHLORIDE [Concomitant]
  21. DIPHENOXYLATE W/ATROPINE SULFATE (ATROPINE SULFATE, DIPHENOXYLATE) [Concomitant]
  22. ESTRADERM [Concomitant]
  23. SIMVASTATIN [Concomitant]
  24. SPIRIVA [Concomitant]
  25. ALDARA [Concomitant]
  26. CLARITIN [Concomitant]
  27. COLACE (DOCUSATE SODIUM) [Concomitant]
  28. DILAUDID [Concomitant]
  29. ACETAMINOPHEN [Concomitant]
  30. MYLANTA (ALUMINUM HYDROXIDE, MAGNESIUM HYDROXIDE) [Concomitant]
  31. CELEBREX [Concomitant]
  32. CIPROFLOXACIN EXTENDED-RELEASE [Concomitant]
  33. METOCLOPRAMIDE [Concomitant]
  34. DOXYCYCLINE [Concomitant]
  35. HISTINEX D (HYDROCODONE BITARTRATE, PSEUDOEPHEDRINE HYDROCHLORIDE) [Concomitant]
  36. BIAXIN [Concomitant]
  37. METHOCARBAMOL [Concomitant]
  38. ACIPHEX (RABEPRAZOLE SODIUIM) [Concomitant]
  39. TRETINOIN [Concomitant]
  40. ULTRAVATE (BETAMETHASONE DIPROPIONATE) [Concomitant]
  41. HYOSCYAMINE (HYOSCYAMINE) [Concomitant]
  42. GENTAK (GENTAMICIN SULFATE) [Concomitant]
  43. PANTENOL (DEXPANTHENOL) [Concomitant]
  44. TOBRADEX [Concomitant]
  45. VYTORIN [Concomitant]
  46. NITROFURANTOIN [Concomitant]
  47. BETAMETHASONE [Concomitant]
  48. HYDROXYZINE [Concomitant]
  49. MISOPROSTOL [Concomitant]
  50. TORADOL [Concomitant]
  51. OSCAL D (CALCIUM CARBONATE, COLECALCIFEROL) [Concomitant]
  52. FERROUS SULFATE [Concomitant]
  53. LOVENOX [Concomitant]
  54. FRAGMIN [Concomitant]
  55. CALCIUM CARBONATE [Concomitant]
  56. ONDANSETRON [Concomitant]
  57. ENSURE (NUTRIENTS NOS) [Concomitant]
  58. LACTULOSE [Concomitant]
  59. MULTIVITAMIN (ASCORBIC ACID, CALCIUM PANTOTHENATE, ERGOCALCIFEROL, NICOTINAMIDE, PYRIDOXINE HYDROCHL [Concomitant]
  60. MILK OF MAGNESIA [Concomitant]
  61. MUCINEX DM (DEXTROMETHORPHAN HYDROBROMIDE, GUAIFENESIN) [Concomitant]
  62. SINGULAIR (MONTELUKAST SODIUIM) [Concomitant]
  63. HUMALOG [Concomitant]
  64. SYMBICORT [Concomitant]

REACTIONS (10)
  - Femur fracture [None]
  - Fall [None]
  - Fracture displacement [None]
  - Pain in extremity [None]
  - Limb asymmetry [None]
  - Limb deformity [None]
  - Anaemia postoperative [None]
  - Platelet count decreased [None]
  - Balance disorder [None]
  - Lower limb fracture [None]
